FAERS Safety Report 15245573 (Version 2)
Quarter: 2018Q3

REPORT INFORMATION
  Report Type: Spontaneous
  Country: ES (occurrence: ES)
  Receive Date: 20180806
  Receipt Date: 20180824
  Transmission Date: 20181010
  Serious: Yes (Other)
  Sender: FDA-Public Use
  Company Number: PHHY2018ES062177

PATIENT
  Age: 45 Year
  Sex: Female

DRUGS (3)
  1. ETHAMBUTOL [Suspect]
     Active Substance: ETHAMBUTOL HYDROCHLORIDE
     Indication: PRODUCT USED FOR UNKNOWN INDICATION
     Route: 065
  2. ISONIAZID. [Suspect]
     Active Substance: ISONIAZID
     Indication: PULMONARY TUBERCULOSIS
     Route: 065
  3. RIFAMPICIN [Suspect]
     Active Substance: RIFAMPIN
     Indication: PULMONARY TUBERCULOSIS
     Route: 065

REACTIONS (6)
  - Thrombocytopenia [Recovered/Resolved]
  - Lupus-like syndrome [Unknown]
  - Pericardial effusion [Unknown]
  - Pyrexia [Unknown]
  - Arthralgia [Unknown]
  - Photosensitivity reaction [Unknown]
